FAERS Safety Report 21143788 (Version 1)
Quarter: 2022Q3

REPORT INFORMATION
  Report Type: Spontaneous
  Country: US (occurrence: None)
  Receive Date: 20220728
  Receipt Date: 20220728
  Transmission Date: 20221027
  Serious: Yes (Hospitalization)
  Sender: FDA-Public Use
  Company Number: None

PATIENT
  Age: 74 Year
  Sex: Female

DRUGS (20)
  1. SILDENAFIL [Suspect]
     Active Substance: SILDENAFIL
     Indication: Pulmonary arterial hypertension
     Dosage: TAKE 2 TABLETS (40 MG TOTAL) BY MOUTH THREE TIMES DAILY
     Route: 048
     Dates: start: 20210113
  2. ALIGN CAP [Concomitant]
  3. ASPIRIN TAB [Concomitant]
  4. ATORVASTATIN [Concomitant]
     Active Substance: ATORVASTATIN
  5. ELIQUIS [Concomitant]
     Active Substance: APIXABAN
  6. FAMOTIDINE TAB [Concomitant]
  7. FLUTICASONE SPR [Concomitant]
  8. FOLIC ACID TAB [Concomitant]
  9. FUROSEMIDE TAB [Concomitant]
  10. IRON TAB [Concomitant]
  11. LANSOPRAZOLE CAP DR [Concomitant]
  12. MULTIVITAMIN TAB [Concomitant]
  13. OPSUMIT TAB [Concomitant]
  14. POTASSIUM TAB [Concomitant]
  15. SPIRONOLACT TAB [Concomitant]
  16. TUMS CHW [Concomitant]
  17. UPTRAVI TAB [Concomitant]
  18. VITAMIN B12 [Concomitant]
     Active Substance: CYANOCOBALAMIN
  19. VITAMIN D3 [Concomitant]
     Active Substance: CHOLECALCIFEROL
  20. VITAMIN E [Concomitant]
     Active Substance: .ALPHA.-TOCOPHEROL

REACTIONS (1)
  - Hernia [None]

NARRATIVE: CASE EVENT DATE: 20220721
